FAERS Safety Report 15819404 (Version 2)
Quarter: 2019Q4

REPORT INFORMATION
  Report Type: Spontaneous
  Country: KR (occurrence: KR)
  Receive Date: 20190114
  Receipt Date: 20191223
  Transmission Date: 20200122
  Serious: Yes (Other)
  Sender: FDA-Public Use
  Company Number: KR-ROCHE-2241939

PATIENT
  Sex: Female

DRUGS (16)
  1. SOLU-MEDROL [Suspect]
     Active Substance: METHYLPREDNISOLONE SODIUM SUCCINATE
     Dosage: PER DOSE
     Route: 065
  2. METHYLPREDNISOLONE. [Suspect]
     Active Substance: METHYLPREDNISOLONE
     Dosage: FOR 1 MONTH
     Route: 065
  3. PREDNISONE. [Suspect]
     Active Substance: PREDNISONE
     Indication: PROPHYLAXIS AGAINST TRANSPLANT REJECTION
     Route: 065
  4. RITUXIMAB. [Suspect]
     Active Substance: RITUXIMAB
     Indication: POST TRANSPLANT LYMPHOPROLIFERATIVE DISORDER
     Route: 065
  5. MYCOPHENOLATE MOFETIL. [Suspect]
     Active Substance: MYCOPHENOLATE MOFETIL
     Route: 065
  6. TACROLIMUS. [Suspect]
     Active Substance: TACROLIMUS
     Indication: PROPHYLAXIS AGAINST TRANSPLANT REJECTION
     Route: 065
  7. DOXORUBICIN [Suspect]
     Active Substance: DOXORUBICIN
     Indication: POST TRANSPLANT LYMPHOPROLIFERATIVE DISORDER
     Route: 065
  8. AMPHOTERICIN B. [Concomitant]
     Active Substance: AMPHOTERICIN B
     Indication: PYELONEPHRITIS ACUTE
     Route: 042
  9. METHYLPREDNISOLONE. [Suspect]
     Active Substance: METHYLPREDNISOLONE
     Indication: PROPHYLAXIS AGAINST TRANSPLANT REJECTION
     Dosage: FOR 1 DAY
     Route: 065
  10. MYCOPHENOLATE MOFETIL. [Suspect]
     Active Substance: MYCOPHENOLATE MOFETIL
     Indication: PROPHYLAXIS AGAINST TRANSPLANT REJECTION
     Route: 065
  11. BASILIXIMAB [Suspect]
     Active Substance: BASILIXIMAB
     Indication: PROPHYLAXIS AGAINST TRANSPLANT REJECTION
     Route: 065
  12. SOLU-MEDROL [Suspect]
     Active Substance: METHYLPREDNISOLONE SODIUM SUCCINATE
     Indication: PROPHYLAXIS AGAINST TRANSPLANT REJECTION
     Dosage: EVERY 8 HOURS FOR 1 DAY
     Route: 065
  13. CYCLOPHOSPHAMIDE. [Suspect]
     Active Substance: CYCLOPHOSPHAMIDE
     Indication: POST TRANSPLANT LYMPHOPROLIFERATIVE DISORDER
     Route: 065
  14. VINCRISTINE [Suspect]
     Active Substance: VINCRISTINE
     Indication: POST TRANSPLANT LYMPHOPROLIFERATIVE DISORDER
     Route: 065
  15. SIROLIMUS. [Suspect]
     Active Substance: SIROLIMUS
     Indication: PROPHYLAXIS AGAINST TRANSPLANT REJECTION
     Route: 065
  16. SOLU-MEDROL [Suspect]
     Active Substance: METHYLPREDNISOLONE SODIUM SUCCINATE
     Dosage: PER DOSE
     Route: 065

REACTIONS (8)
  - Cytopenia [Unknown]
  - Gastroenteritis viral [Unknown]
  - Posterior reversible encephalopathy syndrome [Unknown]
  - Epstein-Barr virus infection [Unknown]
  - Polyomavirus-associated nephropathy [Unknown]
  - Diffuse large B-cell lymphoma [Unknown]
  - Upper respiratory tract infection [Unknown]
  - Central nervous system viral infection [Unknown]
